FAERS Safety Report 7279583-2 (Version None)
Quarter: 2011Q1

REPORT INFORMATION
  Report Type: 
  Country: None (occurrence: None)
  Receive Date: 20110203
  Receipt Date: 20110203
  Transmission Date: 20110831
  Serious: Yes (Hospitalization, Other)
  Sender: FDA-Public Use
  Company Number: None

PATIENT
  Sex: Female
  Weight: 71.6683 kg

DRUGS (1)
  1. TRAZODONE HCL [Suspect]
     Indication: SLEEP DISORDER
     Dosage: 150 MG 1 AT BEDTIME
     Dates: start: 20110201, end: 20110201

REACTIONS (12)
  - DYSPNOEA [None]
  - ERYTHEMA [None]
  - DECREASED APPETITE [None]
  - PRODUCT QUALITY ISSUE [None]
  - PRODUCT SIZE ISSUE [None]
  - MEDICATION ERROR [None]
  - PRODUCT COLOUR ISSUE [None]
  - PRODUCT SHAPE ISSUE [None]
  - HYPOAESTHESIA [None]
  - SYNCOPE [None]
  - VOMITING [None]
  - HEADACHE [None]
